FAERS Safety Report 20761849 (Version 1)
Quarter: 2022Q2

REPORT INFORMATION
  Report Type: Spontaneous
  Country: US (occurrence: None)
  Receive Date: 20220427
  Receipt Date: 20220427
  Transmission Date: 20220721
  Serious: Yes (Hospitalization)
  Sender: FDA-Public Use
  Company Number: None

PATIENT
  Age: 78 Year

DRUGS (1)
  1. CAPECITABINE [Suspect]
     Active Substance: CAPECITABINE
     Indication: Colon cancer
     Dosage: OTHER FREQUENCY : BID X 21 DAYS;?
     Route: 048
     Dates: start: 202204, end: 20220415

REACTIONS (3)
  - Diarrhoea [None]
  - Viral infection [None]
  - White blood cell count decreased [None]

NARRATIVE: CASE EVENT DATE: 20220415
